FAERS Safety Report 8307354-4 (Version None)
Quarter: 2012Q2

REPORT INFORMATION
  Report Type: 
  Country: None (occurrence: None)
  Receive Date: 20120420
  Receipt Date: 20120411
  Transmission Date: 20120825
  Serious: Yes (Hospitalization, Other)
  Sender: FDA-Public Use
  Company Number: 2012040073

PATIENT
  Age: 14 Year
  Sex: Female

DRUGS (1)
  1. OXYMETHOLON (OXYMETHOLONE) [Suspect]
     Indication: CONGENITAL APLASTIC ANAEMIA
     Dosage: 2 MG/KG (DAILY)

REACTIONS (12)
  - RESPIRATORY RATE INCREASED [None]
  - PYOMYOSITIS [None]
  - PLATELET COUNT DECREASED [None]
  - GAMMA-GLUTAMYLTRANSFERASE INCREASED [None]
  - SKIN LESION [None]
  - ALANINE AMINOTRANSFERASE INCREASED [None]
  - PNEUMONIA STAPHYLOCOCCAL [None]
  - WHITE BLOOD CELL COUNT DECREASED [None]
  - MONOCYTE PERCENTAGE INCREASED [None]
  - BACTERAEMIA [None]
  - FEBRILE NEUTROPENIA [None]
  - ASPARTATE AMINOTRANSFERASE INCREASED [None]
